FAERS Safety Report 7907420-9 (Version None)
Quarter: 2011Q4

REPORT INFORMATION
  Report Type: 
  Country: None (occurrence: None)
  Receive Date: 20111110
  Receipt Date: 20111107
  Transmission Date: 20120403
  Serious: Yes (Death, Hospitalization)
  Sender: FDA-Public Use
  Company Number: US-CELGENEUS-163-21660-11052753

PATIENT
  Sex: Male
  Weight: 71.278 kg

DRUGS (4)
  1. ASPIRIN [Suspect]
     Dosage: 81 MILLIGRAM
     Route: 048
  2. ABRAXANE [Suspect]
     Indication: BLADDER CANCER
     Route: 041
  3. PLATELETS [Concomitant]
     Route: 041
  4. RED BLOOD CELLS [Concomitant]
     Route: 041

REACTIONS (5)
  - NEUTROPENIA [None]
  - ACUTE RESPIRATORY DISTRESS SYNDROME [None]
  - CEREBRAL HAEMORRHAGE [None]
  - DEHYDRATION [None]
  - RENAL FAILURE ACUTE [None]
